FAERS Safety Report 4291502-X (Version None)
Quarter: 2004Q1

REPORT INFORMATION
  Report Type: 
  Country: None (occurrence: None)
  Receive Date: 20040211
  Receipt Date: 20031028
  Transmission Date: 20041129
  Serious: No
  Sender: FDA-Public Use
  Company Number: US-BRISTOL-MYERS SQUIBB COMPANY-12421111

PATIENT
  Age: 8 Year
  Sex: Female

DRUGS (2)
  1. CEFZIL [Suspect]
     Route: 048
     Dates: start: 20031027, end: 20031028
  2. HYDROCODONE [Concomitant]

REACTIONS (2)
  - NAUSEA [None]
  - VOMITING [None]
